FAERS Safety Report 18341179 (Version 1)
Quarter: 2020Q4

REPORT INFORMATION
  Report Type: Spontaneous
  Country: NO (occurrence: NO)
  Receive Date: 20201003
  Receipt Date: 20201003
  Transmission Date: 20210113
  Serious: Yes (Life-Threatening, Hospitalization)
  Sender: FDA-Public Use
  Company Number: NO-TEVA-2020-NO-1834015

PATIENT
  Age: 28 Year
  Sex: Male

DRUGS (1)
  1. BUPROPION HYDROCHLORIDE TEVA [Suspect]
     Active Substance: BUPROPION HYDROCHLORIDE
     Dosage: ALLEGEDLY OVERDOSE, UNWITNESSED. 9 GRAMS INGESTED AT APPROXIMATELY 18:00, 9 GRAM
     Dates: start: 20200824

REACTIONS (3)
  - Muscle spasms [Unknown]
  - Dependence on respirator [Unknown]
  - Overdose [Unknown]

NARRATIVE: CASE EVENT DATE: 20200824
